FAERS Safety Report 21831229 (Version 1)
Quarter: 2023Q1

REPORT INFORMATION
  Report Type: Spontaneous
  Country: US (occurrence: US)
  Receive Date: 20230106
  Receipt Date: 20230106
  Transmission Date: 20230418
  Serious: Yes (Other)
  Sender: FDA-Public Use
  Company Number: US-PFIZER INC-202300006832

PATIENT
  Age: 80 Year
  Sex: Female
  Weight: 53.52 kg

DRUGS (1)
  1. IBRANCE [Suspect]
     Active Substance: PALBOCICLIB
     Indication: Breast cancer
     Dosage: 125 MG, CYCLIC (1 TABLET DAILY FOR 21 DAYS, THEN STOP FOR 7 DAYS FOR TOTAL OF 28-DAY CYCLE)
     Route: 048
     Dates: start: 202111

REACTIONS (1)
  - Neutropenia [Unknown]
